FAERS Safety Report 4943643-9 (Version None)
Quarter: 2006Q1

REPORT INFORMATION
  Report Type: 
  Country: None (occurrence: None)
  Receive Date: 20060314
  Receipt Date: 20050214
  Transmission Date: 20060701
  Serious: Yes (Hospitalization, Disabling)
  Sender: FDA-Public Use
  Company Number: US-MERCK-0502USA01893

PATIENT
  Age: 48 Year
  Sex: Male
  Weight: 102 kg

DRUGS (3)
  1. VIOXX [Suspect]
     Indication: BACK PAIN
     Route: 048
     Dates: start: 20020401, end: 20030101
  2. FLEXERIL [Concomitant]
     Indication: BACK PAIN
     Route: 048
  3. MOTRIN [Concomitant]
     Indication: BACK PAIN
     Route: 048
     Dates: start: 20010701, end: 20030301

REACTIONS (8)
  - ASTHENIA [None]
  - BACK PAIN [None]
  - INFECTION [None]
  - INTERVERTEBRAL DISC DEGENERATION [None]
  - INTERVERTEBRAL DISCITIS [None]
  - PULMONARY EMBOLISM [None]
  - SCIATICA [None]
  - SPINAL COLUMN STENOSIS [None]
